FAERS Safety Report 19701271 (Version 1)
Quarter: 2021Q3

REPORT INFORMATION
  Report Type: Spontaneous
  Country: US (occurrence: US)
  Receive Date: 20210814
  Receipt Date: 20210814
  Transmission Date: 20211014
  Serious: Yes (Other)
  Sender: FDA-Public Use
  Company Number: NVSC2021US181170

PATIENT
  Age: 55 Year
  Sex: Female
  Weight: 91 kg

DRUGS (2)
  1. TOBI PODHALER [Suspect]
     Active Substance: TOBRAMYCIN
     Indication: CYSTIC FIBROSIS
     Dosage: 28 MG, BID
     Route: 055
     Dates: start: 20210727
  2. TOBRAMYCIN. [Suspect]
     Active Substance: TOBRAMYCIN
     Indication: CYSTIC FIBROSIS
     Dosage: UNK
     Route: 055

REACTIONS (5)
  - Cough [Recovered/Resolved]
  - Dizziness [Unknown]
  - Choking [Recovered/Resolved]
  - Impaired driving ability [Unknown]
  - Balance disorder [Unknown]

NARRATIVE: CASE EVENT DATE: 20210727
